FAERS Safety Report 5676417-4 (Version None)
Quarter: 2008Q1

REPORT INFORMATION
  Report Type: 
  Country: None (occurrence: None)
  Receive Date: 20080321
  Receipt Date: 20080313
  Transmission Date: 20080703
  Serious: Yes (Hospitalization, Other)
  Sender: FDA-Public Use
  Company Number: US-PFIZER INC-2008023831

PATIENT
  Age: 66 Year
  Sex: Female
  Weight: 113.4 kg

DRUGS (2)
  1. CELEBREX [Suspect]
     Indication: BONE PAIN
     Route: 048
  2. OXYMORPHONE HCL [Suspect]
     Indication: BONE PAIN
     Dosage: DAILY DOSE:10MG
     Route: 048
     Dates: start: 20071219, end: 20071222

REACTIONS (5)
  - ATRIAL FIBRILLATION [None]
  - DIZZINESS [None]
  - FATIGUE [None]
  - PALPITATIONS [None]
  - SINUS TACHYCARDIA [None]
